FAERS Safety Report 10880355 (Version 1)
Quarter: 2015Q1

REPORT INFORMATION
  Report Type: Other
  Country: IT (occurrence: IT)
  Receive Date: 20150302
  Receipt Date: 20150302
  Transmission Date: 20150721
  Serious: Yes (Other)
  Sender: FDA-Public Use
  Company Number: IT-MYLANLABS-2015M1005723

PATIENT

DRUGS (1)
  1. RISPERIDONE MYLAN GENERICS [Suspect]
     Active Substance: RISPERIDONE
     Indication: AUTISM
     Dosage: 2 ML, QD
     Route: 048
     Dates: start: 20141101, end: 20150130

REACTIONS (1)
  - Drug ineffective [Unknown]
